FAERS Safety Report 5321318-4 (Version None)
Quarter: 2007Q2

REPORT INFORMATION
  Report Type: 
  Country: None (occurrence: None)
  Receive Date: 20070507
  Receipt Date: 20070507
  Transmission Date: 20071010
  Serious: No
  Sender: FDA-Public Use
  Company Number: None

PATIENT
  Age: 34 Year
  Sex: Female
  Weight: 68.0396 kg

DRUGS (2)
  1. GABAPENTIN [Suspect]
     Indication: AGITATION
     Dosage: 100MG 2X DAY PO
     Route: 048
     Dates: start: 20070501, end: 20070501
  2. GABAPENTIN [Suspect]
     Indication: DEPRESSION
     Dosage: 100MG 2X DAY PO
     Route: 048
     Dates: start: 20070501, end: 20070501

REACTIONS (5)
  - DYSPHAGIA [None]
  - DYSPNOEA [None]
  - MUSCLE DISORDER [None]
  - PANIC REACTION [None]
  - SENSORY DISTURBANCE [None]
